FAERS Safety Report 7795625-X (Version None)
Quarter: 2011Q4

REPORT INFORMATION
  Report Type: 
  Country: None (occurrence: None)
  Receive Date: 20111004
  Receipt Date: 20110930
  Transmission Date: 20120403
  Serious: Yes (Other)
  Sender: FDA-Public Use
  Company Number: US-GLAXOSMITHKLINE-A0946614A

PATIENT
  Age: 73 Year
  Sex: Female

DRUGS (4)
  1. ADVAIR DISKUS 100/50 [Suspect]
     Indication: CHRONIC OBSTRUCTIVE PULMONARY DISEASE
     Dosage: 1PUFF TWICE PER DAY
     Route: 055
     Dates: start: 20050101
  2. VICODIN [Concomitant]
  3. ALPHAGAN [Concomitant]
  4. UNSPECIFIED MEDICATION [Concomitant]

REACTIONS (2)
  - GLAUCOMA [None]
  - PARANASAL SINUS HYPERSECRETION [None]
